FAERS Safety Report 21229860 (Version 2)
Quarter: 2022Q3

REPORT INFORMATION
  Report Type: Spontaneous
  Country: MK (occurrence: MK)
  Receive Date: 20220818
  Receipt Date: 20220902
  Transmission Date: 20221027
  Serious: Yes (Death, Hospitalization)
  Sender: FDA-Public Use
  Company Number: MK-TEVA-2022-MK-2064441

PATIENT
  Age: 79 Year
  Sex: Female

DRUGS (4)
  1. DOXORUBICIN [Suspect]
     Active Substance: DOXORUBICIN
     Indication: Enteropathy-associated T-cell lymphoma
     Dosage: IN 5 DAYS; 4 CYCLES, 60 MG
     Route: 065
  2. CYCLOPHOSPHAMIDE [Suspect]
     Active Substance: CYCLOPHOSPHAMIDE
     Indication: Enteropathy-associated T-cell lymphoma
     Dosage: 4 CYCLES; IN 5 DAYS, 800 MG
     Route: 065
  3. PREDNISOLONE [Suspect]
     Active Substance: PREDNISOLONE
     Indication: Enteropathy-associated T-cell lymphoma
     Dosage: IN 5 DAYS; 4 CYCLES, 100 MG
     Route: 065
  4. ONCOVIN [Suspect]
     Active Substance: VINCRISTINE SULFATE
     Indication: Enteropathy-associated T-cell lymphoma
     Dosage: IN 5 DAYS; 4 CYCLES, 2 MG
     Route: 065

REACTIONS (1)
  - Drug ineffective [Fatal]
